FAERS Safety Report 13663976 (Version 6)
Quarter: 2017Q3

REPORT INFORMATION
  Report Type: Report from Study
  Country: US (occurrence: US)
  Receive Date: 20170619
  Receipt Date: 20170714
  Transmission Date: 20171127
  Serious: No
  Sender: FDA-Public Use
  Company Number: PHEH2017US018420

PATIENT
  Sex: Female

DRUGS (1)
  1. GILENYA [Suspect]
     Active Substance: FINGOLIMOD HYDROCHLORIDE
     Indication: MULTIPLE SCLEROSIS
     Dosage: 0.5 MG, QD
     Route: 048
     Dates: start: 20170609

REACTIONS (5)
  - Decreased appetite [Unknown]
  - Confusional state [Unknown]
  - Diarrhoea [Unknown]
  - Cognitive disorder [Unknown]
  - Blood pressure decreased [Unknown]
